FAERS Safety Report 17248706 (Version 2)
Quarter: 2020Q1

REPORT INFORMATION
  Report Type: Spontaneous
  Country: IT (occurrence: IT)
  Receive Date: 20200108
  Receipt Date: 20200124
  Transmission Date: 20200409
  Serious: Yes (Other)
  Sender: FDA-Public Use
  Company Number: IT-JNJFOC-20200107525

PATIENT
  Age: 50 Year
  Sex: Female

DRUGS (1)
  1. INFLIXIMAB, RECOMBINANT [Suspect]
     Active Substance: INFLIXIMAB
     Indication: PSORIATIC ARTHROPATHY
     Dosage: AT WEEKS 0, 2, 6 AND 14
     Route: 042

REACTIONS (3)
  - Lupus-like syndrome [Recovering/Resolving]
  - Off label use [Unknown]
  - Product use issue [Unknown]
